FAERS Safety Report 6225329-6 (Version None)
Quarter: 2009Q2

REPORT INFORMATION
  Report Type: 
  Country: None (occurrence: None)
  Receive Date: 20090612
  Receipt Date: 20090414
  Transmission Date: 20091009
  Serious: No
  Sender: FDA-Public Use
  Company Number: US-ABBOTT-09P-163-0568271-00

PATIENT
  Sex: Female
  Weight: 78.088 kg

DRUGS (8)
  1. HUMIRA [Suspect]
     Indication: RHEUMATOID ARTHRITIS
     Route: 058
     Dates: start: 20070601
  2. DETROL [Concomitant]
     Indication: HYPERTONIC BLADDER
     Route: 048
  3. NITROFURANTOIN MACRO [Concomitant]
     Indication: PROPHYLAXIS
     Route: 048
  4. NITROFURANTOIN MACRO [Concomitant]
     Indication: CYSTITIS
  5. NEXIUM [Concomitant]
     Indication: GASTROOESOPHAGEAL REFLUX DISEASE
     Route: 048
  6. METHOTREXATE [Concomitant]
     Indication: RHEUMATOID ARTHRITIS
     Route: 048
  7. FOLIC ACID [Concomitant]
     Indication: MEDICAL DIET
     Route: 048
  8. LEXAPRO [Concomitant]
     Indication: ANXIETY
     Route: 048

REACTIONS (1)
  - INJECTION SITE PAIN [None]
